FAERS Safety Report 12256185 (Version 4)
Quarter: 2016Q2

REPORT INFORMATION
  Report Type: Spontaneous
  Country: US (occurrence: US)
  Receive Date: 20160412
  Receipt Date: 20160509
  Transmission Date: 20160815
  Serious: Yes (Other)
  Sender: FDA-Public Use
  Company Number: US-PFIZER INC-2016204770

PATIENT
  Age: 54 Year
  Sex: Male

DRUGS (3)
  1. IFOSFAMIDE. [Suspect]
     Active Substance: IFOSFAMIDE
     Indication: PALLIATIVE CARE
  2. ADRIAMYCIN [Suspect]
     Active Substance: DOXORUBICIN HYDROCHLORIDE
     Indication: ANGIOSARCOMA METASTATIC
     Dosage: UNK, CYCLIC
     Dates: start: 20150520, end: 20150610
  3. IFOSFAMIDE. [Suspect]
     Active Substance: IFOSFAMIDE
     Indication: ANGIOSARCOMA METASTATIC
     Dosage: UNK, CYCLIC
     Dates: start: 20150520, end: 20150610

REACTIONS (11)
  - Oedema peripheral [Unknown]
  - Subarachnoid haemorrhage [Recovered/Resolved]
  - Disseminated intravascular coagulation [Unknown]
  - Procedural pain [Unknown]
  - Subdural haematoma [Unknown]
  - Abdominal pain [Unknown]
  - Product use issue [Unknown]
  - Disease progression [Unknown]
  - Erectile dysfunction [Unknown]
  - Thrombocytopenia [Unknown]
  - Angiosarcoma metastatic [Unknown]

NARRATIVE: CASE EVENT DATE: 20150520
